FAERS Safety Report 6082499-0 (Version None)
Quarter: 2009Q1

REPORT INFORMATION
  Report Type: 
  Country: None (occurrence: None)
  Receive Date: 20090218
  Receipt Date: 20090212
  Transmission Date: 20090719
  Serious: Yes (Death, Disabling)
  Sender: FDA-Public Use
  Company Number: JP-AVENTIS-200413666JP

PATIENT
  Age: 71 Year
  Sex: Female
  Weight: 44.1 kg

DRUGS (8)
  1. AMARYL [Suspect]
     Indication: DIABETES MELLITUS
     Route: 048
     Dates: start: 20020101
  2. AMARYL [Suspect]
     Route: 048
     Dates: end: 20040616
  3. GLUCOBAY [Suspect]
     Indication: DIABETES MELLITUS
     Route: 048
     Dates: start: 20020101, end: 20040616
  4. GASTER D [Concomitant]
     Route: 048
     Dates: end: 20040616
  5. URSO                               /00465701/ [Concomitant]
     Indication: AUTOIMMUNE HEPATITIS
     Route: 048
     Dates: end: 20040616
  6. MAGMITT [Concomitant]
     Route: 048
     Dates: end: 20040616
  7. NU-LOTAN [Concomitant]
     Indication: HYPERTENSION
     Route: 048
     Dates: end: 20040616
  8. NORVASC [Concomitant]
     Indication: HYPERTENSION
     Route: 048
     Dates: end: 20040616

REACTIONS (1)
  - HYPOGLYCAEMIC COMA [None]
